FAERS Safety Report 10008207 (Version 1)
Quarter: 2014Q1

REPORT INFORMATION
  Report Type: Spontaneous
  Country: US (occurrence: US)
  Receive Date: 20140313
  Receipt Date: 20140313
  Transmission Date: 20141002
  Serious: Yes (Hospitalization, Other)
  Sender: FDA-Public Use
  Company Number: US-TEVA-468431USA

PATIENT
  Age: 80 Year
  Sex: Female

DRUGS (2)
  1. ROPINIROLE [Suspect]
     Dosage: 0.25-0.50MG DAILY
     Route: 065
  2. PIPER METHYSTICUM ROOT [Interacting]
     Indication: RESTLESS LEGS SYNDROME
     Dosage: CONCENTRATED PILL FORM
     Route: 065

REACTIONS (2)
  - Acute psychosis [Recovering/Resolving]
  - Drug interaction [Recovering/Resolving]
